FAERS Safety Report 10208323 (Version 2)
Quarter: 2014Q2

REPORT INFORMATION
  Report Type: Spontaneous
  Country: US (occurrence: US)
  Receive Date: 20140530
  Receipt Date: 20140530
  Transmission Date: 20141212
  Serious: No
  Sender: FDA-Public Use
  Company Number: US-PURDUE-USA-2013-0105443

PATIENT
  Age: 24 Year
  Sex: Female
  Weight: 101.59 kg

DRUGS (1)
  1. MORPHINE SULFATE (SIMILAR TO NDA 19-516) [Suspect]
     Indication: ABDOMINAL PAIN
     Dosage: UNK
     Dates: start: 20110212, end: 20110212

REACTIONS (3)
  - Feeling abnormal [Unknown]
  - Irritability [Unknown]
  - Pruritus [Unknown]
